FAERS Safety Report 15169185 (Version 1)
Quarter: 2018Q3

REPORT INFORMATION
  Report Type: Spontaneous
  Country: FR (occurrence: FR)
  Receive Date: 20180720
  Receipt Date: 20180720
  Transmission Date: 20181010
  Serious: Yes (Hospitalization)
  Sender: FDA-Public Use
  Company Number: FR-TEVA-2018-FR-929157

PATIENT
  Age: 78 Year
  Sex: Female
  Weight: 48 kg

DRUGS (5)
  1. TRAMADOL (CHLORHYDRATE DE) [Suspect]
     Active Substance: TRAMADOL HYDROCHLORIDE
     Indication: ARTHRALGIA
     Dosage: 200 MILLIGRAM DAILY;
     Route: 048
     Dates: end: 20180503
  2. DIAZEPAM. [Suspect]
     Active Substance: DIAZEPAM
     Indication: ANXIETY DISORDER
     Dosage: 10 MILLIGRAM DAILY;
     Route: 048
     Dates: end: 20180504
  3. BISOPROLOL (HEMIFUMARATE DE) [Suspect]
     Active Substance: BISOPROLOL FUMARATE
     Indication: MYOCARDIAL ISCHAEMIA
     Dosage: 2.5 MILLIGRAM DAILY;
     Route: 048
  4. IRBESARTAN. [Suspect]
     Active Substance: IRBESARTAN
     Indication: MYOCARDIAL ISCHAEMIA
     Dosage: 150 MILLIGRAM DAILY;
     Route: 048
  5. CLOMIPRAMINE (CHLORHYDRATE DE) [Suspect]
     Active Substance: CLOMIPRAMINE HYDROCHLORIDE
     Indication: ANXIETY DISORDER
     Dosage: 35 MILLIGRAM DAILY;
     Route: 048

REACTIONS (2)
  - Fall [Unknown]
  - Condition aggravated [Unknown]

NARRATIVE: CASE EVENT DATE: 201804
